FAERS Safety Report 15015146 (Version 1)
Quarter: 2018Q2

REPORT INFORMATION
  Report Type: Spontaneous
  Country: US (occurrence: US)
  Receive Date: 20180522
  Receipt Date: 20180522
  Transmission Date: 20180711
  Serious: Yes (Hospitalization)
  Sender: FDA-Public Use
  Company Number: None

PATIENT
  Age: 69 Year
  Sex: Female

DRUGS (16)
  1. ZORTRESS [Suspect]
     Active Substance: EVEROLIMUS
     Indication: RENAL TRANSPLANT
     Route: 048
     Dates: start: 20160324
  2. CALCIUM [Concomitant]
     Active Substance: CALCIUM
  3. OMEGA 3 [Concomitant]
     Active Substance: OMEGA-3 FATTY ACIDS
  4. ROPINROLE [Concomitant]
  5. ASPIRIN. [Concomitant]
     Active Substance: ASPIRIN
  6. SUMATRIPTAN. [Concomitant]
     Active Substance: SUMATRIPTAN
  7. PRAVASTATIN. [Concomitant]
     Active Substance: PRAVASTATIN
  8. APAP [Concomitant]
     Active Substance: ACETAMINOPHEN
  9. FERROUS SULF [Concomitant]
     Active Substance: FERROUS SULFATE
  10. MULTIVITAMIN [Concomitant]
     Active Substance: VITAMINS
  11. PROCHLORPER [Concomitant]
  12. MYCOPHENOLIC 180 MG DR TAB [Suspect]
     Active Substance: MYCOPHENOLIC ACID
     Indication: RENAL TRANSPLANT
     Route: 048
     Dates: start: 20140516
  13. FLUOXETINE [Concomitant]
     Active Substance: FLUOXETINE HYDROCHLORIDE
  14. VITAMIN D [Concomitant]
     Active Substance: CHOLECALCIFEROL
  15. LISINOPRIL. [Concomitant]
     Active Substance: LISINOPRIL
  16. PROGRAF [Concomitant]
     Active Substance: TACROLIMUS\TACROLIMUS ANHYDROUS

REACTIONS (3)
  - Pyrexia [None]
  - Hypotension [None]
  - Headache [None]

NARRATIVE: CASE EVENT DATE: 2018
